FAERS Safety Report 9283299 (Version 1)
Quarter: 2013Q2

REPORT INFORMATION
  Report Type: Spontaneous
  Country: IT (occurrence: IT)
  Receive Date: 20130510
  Receipt Date: 20130510
  Transmission Date: 20140414
  Serious: No
  Sender: FDA-Public Use
  Company Number: PHHY2013IT046374

PATIENT
  Age: 75 Year
  Sex: Male

DRUGS (9)
  1. TASIGNA [Suspect]
     Indication: CHRONIC MYELOID LEUKAEMIA
     Dosage: 800 MG, DAILY
     Route: 048
     Dates: start: 20130307, end: 20130414
  2. LISINOPRIL [Concomitant]
     Dosage: 20 MG
     Route: 048
  3. ALLOPURINOL [Concomitant]
     Dosage: 300 MG
     Route: 048
  4. MONOKET [Concomitant]
     Route: 048
  5. LASIX [Concomitant]
     Route: 048
  6. NOVONORM [Concomitant]
     Dosage: 4 MG
     Route: 048
  7. TENORMIN [Concomitant]
     Dosage: 50 MG
     Route: 048
  8. INEGY [Concomitant]
     Indication: DYSLIPIDAEMIA
     Route: 048
  9. CARDIOASPIRIN [Concomitant]
     Route: 048

REACTIONS (4)
  - Somnolence [Not Recovered/Not Resolved]
  - Asthenia [Not Recovered/Not Resolved]
  - Fatigue [Not Recovered/Not Resolved]
  - Decreased appetite [Not Recovered/Not Resolved]
